FAERS Safety Report 15948225 (Version 1)
Quarter: 2019Q1

REPORT INFORMATION
  Report Type: Spontaneous
  Country: DE (occurrence: DE)
  Receive Date: 20190212
  Receipt Date: 20190212
  Transmission Date: 20190417
  Serious: Yes (Hospitalization)
  Sender: FDA-Public Use
  Company Number: DE-ROCHE-2259889

PATIENT
  Age: 32 Year
  Sex: Male

DRUGS (40)
  1. REMICADE [Concomitant]
     Active Substance: INFLIXIMAB
     Route: 065
  2. METHOTREXAT [Concomitant]
     Active Substance: METHOTREXATE
     Route: 065
  3. HUMIRA [Concomitant]
     Active Substance: ADALIMUMAB
     Route: 065
     Dates: start: 201508
  4. HUMIRA [Concomitant]
     Active Substance: ADALIMUMAB
     Route: 065
  5. ROACTEMRA [Suspect]
     Active Substance: TOCILIZUMAB
     Indication: PRODUCT USED FOR UNKNOWN INDICATION
     Route: 058
     Dates: start: 201801, end: 201811
  6. CYCLOSPORIN A [Suspect]
     Active Substance: CYCLOSPORINE
     Route: 065
  7. REMICADE [Concomitant]
     Active Substance: INFLIXIMAB
     Route: 065
  8. METHOTREXAT [Concomitant]
     Active Substance: METHOTREXATE
     Route: 065
     Dates: start: 200905
  9. REMICADE [Concomitant]
     Active Substance: INFLIXIMAB
     Route: 065
     Dates: start: 200703
  10. METHOTREXAT [Concomitant]
     Active Substance: METHOTREXATE
     Route: 065
  11. METHOTREXAT [Concomitant]
     Active Substance: METHOTREXATE
     Route: 058
  12. HUMIRA [Concomitant]
     Active Substance: ADALIMUMAB
     Route: 065
     Dates: start: 201901
  13. PREDNISOLON [Concomitant]
     Active Substance: PREDNISOLONE
  14. ROACTEMRA [Suspect]
     Active Substance: TOCILIZUMAB
     Route: 058
  15. REMICADE [Concomitant]
     Active Substance: INFLIXIMAB
     Route: 065
     Dates: start: 201008
  16. REMICADE [Concomitant]
     Active Substance: INFLIXIMAB
     Route: 065
     Dates: start: 201109
  17. METHOTREXAT [Concomitant]
     Active Substance: METHOTREXATE
     Route: 058
  18. HUMIRA [Concomitant]
     Active Substance: ADALIMUMAB
     Route: 065
  19. REMICADE [Concomitant]
     Active Substance: INFLIXIMAB
     Route: 065
     Dates: start: 200907
  20. METHOTREXAT [Concomitant]
     Active Substance: METHOTREXATE
     Route: 065
  21. REMICADE [Concomitant]
     Active Substance: INFLIXIMAB
     Route: 065
  22. REMICADE [Concomitant]
     Active Substance: INFLIXIMAB
     Route: 065
     Dates: start: 201302
  23. REMICADE [Concomitant]
     Active Substance: INFLIXIMAB
     Route: 065
  24. METHOTREXAT [Concomitant]
     Active Substance: METHOTREXATE
     Route: 065
  25. METHOTREXAT [Concomitant]
     Active Substance: METHOTREXATE
     Route: 065
  26. METHOTREXAT [Concomitant]
     Active Substance: METHOTREXATE
     Route: 065
  27. METHOTREXAT [Concomitant]
     Active Substance: METHOTREXATE
     Route: 065
  28. METHOTREXAT [Concomitant]
     Active Substance: METHOTREXATE
     Route: 058
     Dates: start: 201301
  29. METHOTREXAT [Concomitant]
     Active Substance: METHOTREXATE
     Route: 058
     Dates: start: 201310, end: 201806
  30. HUMIRA [Concomitant]
     Active Substance: ADALIMUMAB
     Route: 065
     Dates: start: 201508, end: 201801
  31. CYCLOSPORIN A [Suspect]
     Active Substance: CYCLOSPORINE
     Indication: PRODUCT USED FOR UNKNOWN INDICATION
     Route: 065
     Dates: start: 201806
  32. REMICADE [Concomitant]
     Active Substance: INFLIXIMAB
     Route: 065
  33. METHOTREXAT [Concomitant]
     Active Substance: METHOTREXATE
     Route: 058
  34. METHOTREXAT [Concomitant]
     Active Substance: METHOTREXATE
     Route: 058
  35. METHOTREXAT [Concomitant]
     Active Substance: METHOTREXATE
     Route: 058
  36. REMICADE [Concomitant]
     Active Substance: INFLIXIMAB
     Route: 065
  37. REMICADE [Concomitant]
     Active Substance: INFLIXIMAB
     Route: 065
  38. REMICADE [Concomitant]
     Active Substance: INFLIXIMAB
     Route: 065
     Dates: start: 201302, end: 201508
  39. METHOTREXAT [Concomitant]
     Active Substance: METHOTREXATE
     Route: 065
  40. METHOTREXAT [Concomitant]
     Active Substance: METHOTREXATE
     Route: 058

REACTIONS (2)
  - Gastrointestinal inflammation [Recovered/Resolved]
  - Mechanical ileus [Recovered/Resolved]

NARRATIVE: CASE EVENT DATE: 20181017
